FAERS Safety Report 10072686 (Version 1)
Quarter: 2014Q2

REPORT INFORMATION
  Report Type: Spontaneous
  Country: FR (occurrence: FR)
  Receive Date: 20140411
  Receipt Date: 20140411
  Transmission Date: 20141212
  Serious: Yes (Other)
  Sender: FDA-Public Use
  Company Number: FR-ASTRAZENECA-2014SE23561

PATIENT
  Age: 11524 Day
  Sex: Female

DRUGS (3)
  1. XYLOCAINE WITH EPINEPHRINE [Suspect]
     Indication: EPIDURAL ANAESTHESIA
     Dosage: EPINEPHRINE
     Route: 008
     Dates: start: 20140315, end: 20140315
  2. XYLOCAINE WITH EPINEPHRINE [Suspect]
     Indication: EPIDURAL ANAESTHESIA
     Dosage: LIDOCAINE AGUETTANT (GENERIC - NON AZ PRODUCT), 9 ML ONCE
     Route: 008
     Dates: start: 20140315, end: 20140315
  3. PROPOFOL [Concomitant]

REACTIONS (2)
  - Anaesthetic complication neurological [Unknown]
  - Drug ineffective [Recovered/Resolved]
